FAERS Safety Report 8925027 (Version 2)
Quarter: 2012Q4

REPORT INFORMATION
  Report Type: 
  Country: US (occurrence: US)
  Receive Date: 20121126
  Receipt Date: 20121212
  Transmission Date: 20130627
  Serious: No
  Sender: FDA-Public Use
  Company Number: US-VERTEX PHARMACEUTICAL INC.-2012-024936

PATIENT
  Age: 26 Year
  Sex: Female
  Weight: 63 kg

DRUGS (6)
  1. INCIVEK [Suspect]
     Indication: HEPATITIS C
     Dosage: 750 mg, tid
     Route: 048
     Dates: start: 20121106, end: 20121118
  2. INCIVEK [Suspect]
     Dosage: UNK
     Dates: start: 20121120, end: 20121126
  3. PEGASYS [Suspect]
     Indication: HEPATITIS C
     Dosage: 180 ?g, qw
     Route: 058
     Dates: start: 20121106, end: 20121113
  4. PEGASYS [Suspect]
     Dosage: UNK
     Dates: start: 20121120, end: 20121126
  5. RIBAVIRIN [Suspect]
     Indication: HEPATITIS C
     Dosage: 600mg AM, 400mg PM, qd
     Route: 048
     Dates: start: 20121106, end: 20121118
  6. RIBAVIRIN [Suspect]
     Dosage: UNK
     Dates: start: 20121120, end: 20121126

REACTIONS (10)
  - Drug dose omission [Unknown]
  - Confusional state [Unknown]
  - Anxiety [Unknown]
  - Headache [Not Recovered/Not Resolved]
  - Irritability [Unknown]
  - Chills [Unknown]
  - Decreased appetite [Not Recovered/Not Resolved]
  - Dysgeusia [Not Recovered/Not Resolved]
  - Vomiting [Not Recovered/Not Resolved]
  - Nausea [Not Recovered/Not Resolved]
